FAERS Safety Report 5495295-X (Version None)
Quarter: 2007Q4

REPORT INFORMATION
  Report Type: 
  Country: None (occurrence: None)
  Receive Date: 20071024
  Receipt Date: 20071015
  Transmission Date: 20080405
  Serious: Yes (Hospitalization, Other)
  Sender: FDA-Public Use
  Company Number: FR-PFIZER INC-2007081294

PATIENT
  Sex: Female

DRUGS (6)
  1. CHAMPIX [Suspect]
  2. LEVOTHYROXINE SODIUM [Concomitant]
     Indication: HYPOTHYROIDISM
     Dosage: DAILY DOSE:150MCG
     Route: 048
  3. BENFLUOREX HYDROCHLORIDE [Concomitant]
     Dosage: DAILY DOSE:150MG
     Route: 048
  4. OROCAL VITAMIN D [Concomitant]
     Indication: OSTEOPOROSIS
     Dosage: DAILY DOSE:500MG
     Route: 048
  5. ESTRADIOL HEMIHYDRATE [Concomitant]
     Indication: MENOPAUSE
     Route: 062
  6. ALDALIX [Concomitant]
     Indication: CARDIAC FAILURE

REACTIONS (4)
  - ANGIOEDEMA [None]
  - DYSPNOEA [None]
  - HYPERSENSITIVITY [None]
  - PANIC REACTION [None]
